FAERS Safety Report 25111833 (Version 1)
Quarter: 2025Q1

REPORT INFORMATION
  Report Type: Spontaneous
  Country: US (occurrence: US)
  Receive Date: 20250324
  Receipt Date: 20250324
  Transmission Date: 20250408
  Serious: Yes (Other)
  Sender: PFIZER
  Company Number: US-PFIZER INC-PV202500034529

PATIENT
  Age: 56 Year
  Sex: Female

DRUGS (1)
  1. XELJANZ XR [Suspect]
     Active Substance: TOFACITINIB CITRATE
     Indication: Rheumatoid arthritis
     Dosage: 11 MG, DAILY
     Route: 048
     Dates: start: 2024

REACTIONS (11)
  - Pneumonia [Unknown]
  - Asthma [Recovering/Resolving]
  - Eye infection [Unknown]
  - Condition aggravated [Unknown]
  - Swelling of eyelid [Unknown]
  - Eyelid pain [Unknown]
  - Abnormal sensation in eye [Recovering/Resolving]
  - Dry eye [Unknown]
  - Chest pain [Not Recovered/Not Resolved]
  - Dyspnoea [Not Recovered/Not Resolved]
  - Inflammation [Recovering/Resolving]

NARRATIVE: CASE EVENT DATE: 20250201
